FAERS Safety Report 18204929 (Version 1)
Quarter: 2020Q3

REPORT INFORMATION
  Report Type: Report from Study
  Country: PT (occurrence: PT)
  Receive Date: 20200828
  Receipt Date: 20200828
  Transmission Date: 20201103
  Serious: Yes (Death, Other)
  Sender: FDA-Public Use
  Company Number: PT-AUROBINDO-AUR-APL-2020-037843

PATIENT
  Age: 66 Year
  Sex: Male

DRUGS (2)
  1. AMIODARONE [Suspect]
     Active Substance: AMIODARONE
     Indication: ATRIAL FIBRILLATION
     Dosage: UNK
     Route: 065
  2. AMIODARONE [Suspect]
     Active Substance: AMIODARONE
     Indication: WOLFF-PARKINSON-WHITE SYNDROME

REACTIONS (4)
  - Hyperthyroidism [Fatal]
  - Condition aggravated [Unknown]
  - Thyroid mass [Unknown]
  - Atrial fibrillation [Unknown]
